FAERS Safety Report 14824835 (Version 1)
Quarter: 2018Q2

REPORT INFORMATION
  Report Type: Spontaneous
  Country: IT (occurrence: IT)
  Receive Date: 20180430
  Receipt Date: 20180430
  Transmission Date: 20180711
  Serious: Yes (Hospitalization)
  Sender: FDA-Public Use
  Company Number: IT-MYLANLABS-2018M1027937

PATIENT
  Age: 37 Year
  Sex: Female

DRUGS (1)
  1. CETIRIZINE [Suspect]
     Active Substance: CETIRIZINE HYDROCHLORIDE
     Indication: PRODUCT USED FOR UNKNOWN INDICATION
     Dosage: 10 MG, PRN
     Route: 048
     Dates: start: 20170806, end: 20170806

REACTIONS (3)
  - Sopor [Unknown]
  - Vertigo [Unknown]
  - Cognitive disorder [Unknown]

NARRATIVE: CASE EVENT DATE: 20170806
